FAERS Safety Report 19442052 (Version 1)
Quarter: 2021Q2

REPORT INFORMATION
  Report Type: Spontaneous
  Country: US (occurrence: US)
  Receive Date: 20210617
  Receipt Date: 20210617
  Transmission Date: 20210717
  Serious: Yes (Death)
  Sender: FDA-Public Use
  Company Number: None

PATIENT
  Age: 61 Year
  Sex: Male

DRUGS (1)
  1. EMGALITY [Suspect]
     Active Substance: GALCANEZUMAB-GNLM
     Indication: MIGRAINE
     Dosage: 120MG UNDER THE SKIN Q 30 DAYS?
     Route: 058
     Dates: start: 20210407

REACTIONS (1)
  - Death [None]

NARRATIVE: CASE EVENT DATE: 20210617
